FAERS Safety Report 8395435 (Version 11)
Quarter: 2012Q4

REPORT INFORMATION
  Report Type: 
  Country: ES (occurrence: ES)
  Receive Date: 20120208
  Receipt Date: 20121101
  Transmission Date: 20130627
  Serious: Yes (Other)
  Sender: FDA-Public Use
  Company Number: ES-PFIZER INC-2012027185

PATIENT
  Age: 17 Month
  Sex: Male
  Weight: 12.5 kg

DRUGS (3)
  1. MOROCTOCOG ALFA [Suspect]
     Indication: FACTOR VIII DEFICIENCY
     Dosage: 25 IU/kg, weekly
     Dates: start: 20110920
  2. MOROCTOCOG ALFA [Suspect]
     Indication: HAEMOPHILIA NOS
     Dosage: 2250 IU, three times a week
     Route: 042
  3. MOROCTOCOG ALFA [Suspect]
     Dosage: 2250 IU, three times a week
     Route: 042
     Dates: start: 20120917

REACTIONS (1)
  - Factor VIII inhibition [Not Recovered/Not Resolved]
